FAERS Safety Report 16719902 (Version 1)
Quarter: 2019Q3

REPORT INFORMATION
  Report Type: Spontaneous
  Country: CN (occurrence: CN)
  Receive Date: 20190820
  Receipt Date: 20190820
  Transmission Date: 20191005
  Serious: Yes (Hospitalization, Other)
  Sender: FDA-Public Use
  Company Number: CN-PFIZER INC-2019348595

PATIENT
  Age: 84 Year
  Sex: Female

DRUGS (1)
  1. CADUET [Suspect]
     Active Substance: AMLODIPINE BESYLATE\ATORVASTATIN CALCIUM
     Dosage: UNK, 1X/DAY
     Route: 048

REACTIONS (14)
  - Gastric disorder [Recovering/Resolving]
  - Electrocardiogram T wave abnormal [Unknown]
  - Spleen disorder [Recovering/Resolving]
  - Aortic valve incompetence [Unknown]
  - Chronic gastritis [Recovering/Resolving]
  - Mitral valve incompetence [Unknown]
  - Respiratory failure [Unknown]
  - Aortic arteriosclerosis [Unknown]
  - Hepatic steatosis [Unknown]
  - Left ventricular dysfunction [Unknown]
  - Abdominal distension [Recovering/Resolving]
  - Renal cyst [Unknown]
  - Tricuspid valve incompetence [Unknown]
  - Ventricular enlargement [Unknown]
